FAERS Safety Report 14081523 (Version 4)
Quarter: 2018Q2

REPORT INFORMATION
  Report Type: Report from Study
  Country: AU (occurrence: AU)
  Receive Date: 20171012
  Receipt Date: 20180409
  Transmission Date: 20180711
  Serious: Yes (Hospitalization, Other)
  Sender: FDA-Public Use
  Company Number: AU-REGENERON PHARMACEUTICALS, INC.-2017-22603

PATIENT

DRUGS (1)
  1. EYLEA [Suspect]
     Active Substance: AFLIBERCEPT
     Indication: NEOVASCULAR AGE-RELATED MACULAR DEGENERATION
     Dosage: LEFT EYE
     Route: 031

REACTIONS (8)
  - Fall [Unknown]
  - Ocular discomfort [Recovered/Resolved]
  - Hospitalisation [Not Recovered/Not Resolved]
  - Pain [Unknown]
  - Eye disorder [Unknown]
  - Femur fracture [Recovering/Resolving]
  - Poor quality sleep [Unknown]
  - Visual impairment [Unknown]

NARRATIVE: CASE EVENT DATE: 20170913
